FAERS Safety Report 21556166 (Version 1)
Quarter: 2022Q4

REPORT INFORMATION
  Report Type: Spontaneous
  Country: JP (occurrence: JP)
  Receive Date: 20221104
  Receipt Date: 20221104
  Transmission Date: 20230113
  Serious: Yes (Other)
  Sender: FDA-Public Use
  Company Number: JP-PFIZER INC-PV202200096017

PATIENT

DRUGS (1)
  1. SUTENT [Suspect]
     Active Substance: SUNITINIB MALATE
     Indication: Gastrointestinal stromal tumour
     Dosage: 25 MG, CYCLIC (FOR 2 WEEKS ON FOLLOWED BY 1 WEEKS OFF)
     Dates: start: 202205, end: 202209

REACTIONS (1)
  - Cytopenia [Recovered/Resolved]
